FAERS Safety Report 10038879 (Version 1)
Quarter: 2014Q1

REPORT INFORMATION
  Report Type: Spontaneous
  Country: FR (occurrence: FR)
  Receive Date: 20140326
  Receipt Date: 20140326
  Transmission Date: 20141002
  Serious: Yes (Other)
  Sender: FDA-Public Use
  Company Number: FR-GLAXOSMITHKLINE-B0978559A

PATIENT
  Age: 70 Year
  Sex: Female

DRUGS (7)
  1. ZELITREX [Suspect]
     Indication: GENITAL HERPES
     Dosage: 500MG SEE DOSAGE TEXT
     Route: 048
     Dates: start: 20140318, end: 20140319
  2. LASILIX [Concomitant]
     Indication: SELF-MEDICATION
     Dosage: 20MG SEE DOSAGE TEXT
     Route: 048
  3. AERIUS [Concomitant]
  4. MIANSERINE [Concomitant]
     Dosage: 2TAB PER DAY
  5. ASPIRIN [Concomitant]
     Dosage: 500MG TWICE PER DAY
  6. CHONDROSULF [Concomitant]
     Dosage: 2TAB PER DAY
  7. NUTRITIONAL SUPPLEMENT [Concomitant]

REACTIONS (1)
  - Urinary retention [Not Recovered/Not Resolved]
